FAERS Safety Report 5044729-3 (Version None)
Quarter: 2006Q2

REPORT INFORMATION
  Report Type: 
  Country: None (occurrence: None)
  Receive Date: 20060601
  Receipt Date: 20060217
  Transmission Date: 20061013
  Serious: No
  Sender: FDA-Public Use
  Company Number: 2006-BP-01896BP

PATIENT
  Age: 80 Year
  Sex: Male

DRUGS (4)
  1. SPIRIVA [Suspect]
     Indication: ASTHMA
     Dosage: 18 MCG (18 MCG, 1 IN 1 D), IH
     Route: 055
     Dates: start: 20050601
  2. ADVAIR (SERETIDE /01420901/) [Concomitant]
  3. SINGULAIR [Concomitant]
  4. LIPITOR [Concomitant]

REACTIONS (1)
  - DYSPNOEA [None]
